FAERS Safety Report 9801666 (Version 2)
Quarter: 2014Q1

REPORT INFORMATION
  Report Type: Spontaneous
  Country: US (occurrence: US)
  Receive Date: 20140107
  Receipt Date: 20140130
  Transmission Date: 20141002
  Serious: Yes (Hospitalization)
  Sender: FDA-Public Use
  Company Number: US-009507513-1401USA001090

PATIENT
  Sex: Female

DRUGS (1)
  1. DULERA [Suspect]
     Route: 055

REACTIONS (1)
  - Palpitations [Recovering/Resolving]
